FAERS Safety Report 6639122-3 (Version None)
Quarter: 2010Q1

REPORT INFORMATION
  Report Type: 
  Country: None (occurrence: None)
  Receive Date: 20100312
  Receipt Date: 20100225
  Transmission Date: 20100710
  Serious: Yes (Death, Hospitalization, Other)
  Sender: FDA-Public Use
  Company Number: 2010BI001467

PATIENT
  Age: 59 Year
  Sex: Male

DRUGS (5)
  1. ZEVALIN [Suspect]
     Indication: NON-HODGKIN'S LYMPHOMA
     Dosage: ; 1X; IV
     Route: 042
     Dates: start: 20080501, end: 20080501
  2. ZEVALIN [Suspect]
     Indication: STEM CELL TRANSPLANT
     Dosage: ; 1X; IV
     Route: 042
     Dates: start: 20080501, end: 20080501
  3. RITUXIMAB [Concomitant]
  4. CYCLOSPORINE [Concomitant]
  5. FLUDARABINE PHOSPHATE [Concomitant]

REACTIONS (4)
  - CARDIAC FAILURE [None]
  - PYREXIA [None]
  - STEM CELL TRANSPLANT [None]
  - SUDDEN CARDIAC DEATH [None]
